FAERS Safety Report 7218350-2 (Version None)
Quarter: 2011Q1

REPORT INFORMATION
  Report Type: 
  Country: None (occurrence: None)
  Receive Date: 20110110
  Receipt Date: 20110105
  Transmission Date: 20110831
  Serious: Yes (Other)
  Sender: FDA-Public Use
  Company Number: US-PFIZER INC-2011003180

PATIENT
  Sex: Male
  Weight: 95.2 kg

DRUGS (2)
  1. LITHIUM [Concomitant]
     Dosage: UNK
  2. LIPITOR [Suspect]
     Indication: MYOCARDIAL INFARCTION
     Dosage: UNK
     Route: 048
     Dates: start: 19960101

REACTIONS (9)
  - HAEMORRHAGE [None]
  - LIVER DISORDER [None]
  - LIP SWELLING [None]
  - LAZINESS [None]
  - NAUSEA [None]
  - MYOCARDIAL INFARCTION [None]
  - OESOPHAGEAL DISORDER [None]
  - SWELLING FACE [None]
  - CHEST PAIN [None]
